FAERS Safety Report 13566876 (Version 1)
Quarter: 2017Q2

REPORT INFORMATION
  Report Type: Spontaneous
  Country: US (occurrence: US)
  Receive Date: 20170519
  Receipt Date: 20170519
  Transmission Date: 20170830
  Serious: Yes (Other)
  Sender: FDA-Public Use
  Company Number: None

PATIENT
  Age: 27 Year
  Sex: Female
  Weight: 51.75 kg

DRUGS (8)
  1. PENTASA [Concomitant]
     Active Substance: MESALAMINE
  2. NORETHINDRONE ENTYVIO [Concomitant]
  3. MULTIVITAMIN [Concomitant]
     Active Substance: VITAMINS
  4. ENTYVIO [Suspect]
     Active Substance: VEDOLIZUMAB
     Indication: CROHN^S DISEASE
     Dosage: OTHER FREQUENCY:EVERY 8 WEEKS;?
     Route: 042
  5. IRON SUPPLEMENTATION [Concomitant]
  6. AMOXICILLIN. [Concomitant]
     Active Substance: AMOXICILLIN
  7. FLUVOXAMINE [Concomitant]
     Active Substance: FLUVOXAMINE
  8. VITAMIN B12 SUPPLEMENT [Concomitant]

REACTIONS (1)
  - Clostridium difficile infection [None]

NARRATIVE: CASE EVENT DATE: 20160606
